FAERS Safety Report 24054174 (Version 1)
Quarter: 2024Q3

REPORT INFORMATION
  Report Type: Other
  Country: CA (occurrence: CA)
  Receive Date: 20240705
  Receipt Date: 20240705
  Transmission Date: 20241016
  Serious: Yes (Other)
  Sender: BIOCON
  Company Number: CA-BIOCON BIOLOGICS LIMITED-BBL2024004788

PATIENT

DRUGS (11)
  1. HULIO [Suspect]
     Active Substance: ADALIMUMAB-FKJP
     Indication: Crohn^s disease
     Dosage: 40 MILLIGRAM, BIWEEKLY
     Route: 058
  2. HULIO [Suspect]
     Active Substance: ADALIMUMAB-FKJP
     Indication: Anal fistula
     Dosage: 40 MILLIGRAM, WEEKS
     Route: 058
  3. HULIO [Suspect]
     Active Substance: ADALIMUMAB-FKJP
     Dosage: 40 MILLIGRAM, BIWEEKLY
     Route: 058
  4. HULIO [Suspect]
     Active Substance: ADALIMUMAB-FKJP
     Dosage: UNK, BIWEEKLY
     Route: 065
  5. HULIO [Suspect]
     Active Substance: ADALIMUMAB-FKJP
     Dosage: 40 MILLIGRAM, BIWEEKLY
     Route: 058
  6. HULIO [Suspect]
     Active Substance: ADALIMUMAB-FKJP
     Dosage: UNK, BIWEEKLY
     Route: 065
  7. HULIO [Suspect]
     Active Substance: ADALIMUMAB-FKJP
     Dosage: 40 MILLIGRAM, WEEKS
     Route: 058
  8. HULIO [Suspect]
     Active Substance: ADALIMUMAB-FKJP
     Dosage: 40 MILLIGRAM, BIWEEKLY
     Route: 058
  9. MORPHINE [Concomitant]
     Active Substance: MORPHINE
     Indication: Product used for unknown indication
     Route: 065
  10. LYRICA [Concomitant]
     Active Substance: PREGABALIN
     Indication: Product used for unknown indication
     Route: 065
  11. IMURAN [Concomitant]
     Active Substance: AZATHIOPRINE
     Indication: Product used for unknown indication
     Route: 065

REACTIONS (50)
  - Female genital tract fistula [Unknown]
  - Burning sensation [Unknown]
  - Ageusia [Unknown]
  - Endometriosis [Unknown]
  - Pelvic discomfort [Unknown]
  - Drug level decreased [Unknown]
  - Thyroid cyst [Unknown]
  - Joint swelling [Unknown]
  - Throat irritation [Unknown]
  - Anosmia [Unknown]
  - Fistula [Unknown]
  - Drug intolerance [Unknown]
  - Inflammatory bowel disease [Unknown]
  - Nephrolithiasis [Unknown]
  - Post-traumatic stress disorder [Unknown]
  - Irritable bowel syndrome [Unknown]
  - Adenomyosis [Unknown]
  - Feeling abnormal [Unknown]
  - Feeling hot [Unknown]
  - Constipation [Unknown]
  - Adverse reaction [Unknown]
  - Frequent bowel movements [Unknown]
  - Malaise [Unknown]
  - Palpitations [Unknown]
  - Muscular weakness [Unknown]
  - Oropharyngeal pain [Unknown]
  - Lymphadenopathy [Unknown]
  - Fatigue [Unknown]
  - Arthralgia [Unknown]
  - Photosensitivity reaction [Unknown]
  - Pain [Unknown]
  - Anxiety [Unknown]
  - Vomiting [Unknown]
  - Herpes zoster [Unknown]
  - Body temperature increased [Unknown]
  - Drug ineffective [Unknown]
  - Lupus-like syndrome [Unknown]
  - Headache [Unknown]
  - Pharyngitis streptococcal [Unknown]
  - Abdominal pain [Unknown]
  - COVID-19 [Unknown]
  - Alopecia [Unknown]
  - Oral candidiasis [Unknown]
  - Nausea [Unknown]
  - Hyperhidrosis [Unknown]
  - Extra dose administered [Unknown]
  - Product dose omission issue [Unknown]
  - Off label use [Unknown]
  - Inappropriate schedule of product administration [Unknown]
  - Product prescribing issue [Unknown]
